FAERS Safety Report 14881265 (Version 1)
Quarter: 2018Q2

REPORT INFORMATION
  Report Type: Spontaneous
  Country: US (occurrence: US)
  Receive Date: 20180425
  Receipt Date: 20180425
  Transmission Date: 20180711
  Serious: Yes (Hospitalization, Other)
  Sender: FDA-Public Use
  Company Number: None

PATIENT
  Age: 37 Year
  Sex: Male
  Weight: 117 kg

DRUGS (3)
  1. MEN^S ONE A DAY [Concomitant]
  2. CHANTIX [Suspect]
     Active Substance: VARENICLINE TARTRATE
     Dosage: ?          QUANTITY:57 DF DOSAGE FORM;?
     Route: 048
     Dates: start: 20180319, end: 20180423
  3. ADVIL [Concomitant]
     Active Substance: IBUPROFEN

REACTIONS (7)
  - Abdominal distension [None]
  - Constipation [None]
  - Pain [None]
  - Arthralgia [None]
  - Abdominal pain [None]
  - Nausea [None]
  - Eating disorder [None]

NARRATIVE: CASE EVENT DATE: 20180417
